FAERS Safety Report 24809372 (Version 2)
Quarter: 2025Q1

REPORT INFORMATION
  Report Type: Spontaneous
  Country: PT (occurrence: PT)
  Receive Date: 20250106
  Receipt Date: 20250118
  Transmission Date: 20250408
  Serious: Yes (Hospitalization)
  Sender: TEVA
  Company Number: PT-TEVA-VS-3282532

PATIENT
  Age: 50 Year
  Sex: Male

DRUGS (1)
  1. BUPRENORPHINE [Suspect]
     Active Substance: BUPRENORPHINE
     Indication: Musculoskeletal pain
     Route: 062

REACTIONS (8)
  - Drug-induced liver injury [Recovered/Resolved]
  - Jaundice [Unknown]
  - Myalgia [Unknown]
  - Liver injury [Unknown]
  - Cholestasis [Recovered/Resolved]
  - Decreased appetite [Unknown]
  - Choluria [Unknown]
  - Plasma cell myeloma [Unknown]
